FAERS Safety Report 4454538-1 (Version None)
Quarter: 2004Q3

REPORT INFORMATION
  Report Type: 
  Country: None (occurrence: None)
  Receive Date: 20040917
  Receipt Date: 20040917
  Transmission Date: 20050211
  Serious: No
  Sender: FDA-Public Use
  Company Number: None

PATIENT

DRUGS (4)
  1. COREG [Suspect]
  2. COZAAR [Suspect]
  3. LISINOPRIL [Suspect]
  4. LISINOPRIL [Suspect]

REACTIONS (1)
  - MEDICATION ERROR [None]
